FAERS Safety Report 25007400 (Version 2)
Quarter: 2025Q3

REPORT INFORMATION
  Report Type: Report from Study
  Country: US (occurrence: US)
  Receive Date: 20250225
  Receipt Date: 20250810
  Transmission Date: 20251021
  Serious: Yes (Hospitalization, Other)
  Sender: ALEXION PHARMACEUTICALS
  Company Number: US-ASTRAZENECA-202502USA019831US

PATIENT
  Age: 85 Year
  Sex: Male

DRUGS (1)
  1. OLAPARIB [Suspect]
     Active Substance: OLAPARIB
     Indication: Prostate cancer
     Dosage: 200 MILLIGRAM, BID
     Dates: start: 202501

REACTIONS (6)
  - Haemoglobin decreased [Unknown]
  - Blood potassium increased [Unknown]
  - Cardiac failure [Unknown]
  - Arrhythmia [Unknown]
  - Dizziness [Unknown]
  - Cough [Unknown]

NARRATIVE: CASE EVENT DATE: 20250101
